FAERS Safety Report 15359806 (Version 3)
Quarter: 2018Q3

REPORT INFORMATION
  Report Type: Spontaneous
  Country: JP (occurrence: JP)
  Receive Date: 20180907
  Receipt Date: 20180918
  Transmission Date: 20181010
  Serious: No
  Sender: FDA-Public Use
  Company Number: JP-TEVA-2018-JP-004783J

PATIENT
  Age: 54 Year
  Sex: Male
  Weight: 66 kg

DRUGS (3)
  1. LACTEC [Concomitant]
     Active Substance: CALCIUM CHLORIDE ANHYDROUS\POTASSIUM CHLORIDE\SODIUM CHLORIDE\SODIUM LACTATE
     Dosage: 500 MILLIGRAM DAILY;
     Route: 041
     Dates: start: 20180710, end: 20180710
  2. SCOPOLAMINE BUTYLBROMIDE [Concomitant]
     Active Substance: SCOPOLAMINE
     Dosage: 20 MILLIGRAM DAILY;
     Route: 042
     Dates: start: 20180710, end: 20180710
  3. CERCINE [Suspect]
     Active Substance: DIAZEPAM
     Indication: ANXIETY
     Route: 042
     Dates: start: 20180710, end: 20180710

REACTIONS (1)
  - Thrombophlebitis [Not Recovered/Not Resolved]

NARRATIVE: CASE EVENT DATE: 201807
